FAERS Safety Report 5141395-3 (Version None)
Quarter: 2006Q4

REPORT INFORMATION
  Report Type: 
  Country: None (occurrence: None)
  Receive Date: 20061026
  Receipt Date: 20061016
  Transmission Date: 20070319
  Serious: Yes (Other)
  Sender: FDA-Public Use
  Company Number: 2006126758

PATIENT
  Sex: Male
  Weight: 88.905 kg

DRUGS (5)
  1. LIPITOR [Suspect]
     Indication: BLOOD CHOLESTEROL INCREASED
     Dosage: 20 MG (20 MG, 1 IN 1 D),
     Dates: start: 20051001
  2. BENAZEPRIL (BENAZEPRIL) [Concomitant]
  3. VIAGRA [Concomitant]
  4. SYNTHROID [Concomitant]
  5. ACIPHEX [Concomitant]

REACTIONS (3)
  - BACK PAIN [None]
  - MOVEMENT DISORDER [None]
  - MUSCLE DISORDER [None]
